FAERS Safety Report 18462605 (Version 6)
Quarter: 2020Q4

REPORT INFORMATION
  Report Type: Report from Study
  Country: US (occurrence: US)
  Receive Date: 20201104
  Receipt Date: 20201214
  Transmission Date: 20210114
  Serious: Yes (Hospitalization)
  Sender: FDA-Public Use
  Company Number: US-EISAI MEDICAL RESEARCH-EC-2020-083237

PATIENT
  Age: 64 Year
  Sex: Female
  Weight: 66.22 kg

DRUGS (26)
  1. CARBOPLATIN. [Concomitant]
     Active Substance: CARBOPLATIN
     Dates: start: 20191121, end: 20200123
  2. FENOFIBRATE. [Concomitant]
     Active Substance: FENOFIBRATE
     Dates: start: 201401
  3. ATORVASTATIN CALCIUM. [Concomitant]
     Active Substance: ATORVASTATIN CALCIUM
     Dates: start: 201401
  4. AMLODIPINE BESYLATE. [Concomitant]
     Active Substance: AMLODIPINE BESYLATE
     Dates: start: 201508
  5. HYDROCORTISONE ACETATE. [Concomitant]
     Active Substance: HYDROCORTISONE ACETATE
     Dates: start: 20200204
  6. PEMETREXED. [Suspect]
     Active Substance: PEMETREXED
     Route: 041
     Dates: start: 20200618, end: 20200618
  7. PRINIVIL [Concomitant]
     Active Substance: LISINOPRIL
     Dates: start: 201401
  8. METFORMIN HYDROCHLORIDE. [Concomitant]
     Active Substance: METFORMIN HYDROCHLORIDE
     Dates: start: 201401
  9. FOLIC ACID. [Concomitant]
     Active Substance: FOLIC ACID
     Dates: start: 201701
  10. MORPHINE [Concomitant]
     Active Substance: MORPHINE
     Dates: start: 20201026, end: 20201026
  11. NOVOLOG [Concomitant]
     Active Substance: INSULIN ASPART
     Dates: start: 201701
  12. INJECTAFER [Concomitant]
     Active Substance: FERRIC CARBOXYMALTOSE
     Dates: start: 20180918
  13. CHLORTHALIDONE. [Concomitant]
     Active Substance: CHLORTHALIDONE
     Dates: start: 20200710
  14. ANORO ELLIPTA [Concomitant]
     Active Substance: UMECLIDINIUM BROMIDE\VILANTEROL TRIFENATATE
     Dates: start: 201601
  15. ACIDOPHILUS [Concomitant]
     Active Substance: LACTOBACILLUS ACIDOPHILUS
     Dates: start: 201911
  16. PEMBROLIZUMAB. [Suspect]
     Active Substance: PEMBROLIZUMAB
     Indication: NON-SMALL CELL LUNG CANCER METASTATIC
     Route: 041
     Dates: start: 20191121, end: 20200123
  17. PEMBROLIZUMAB. [Suspect]
     Active Substance: PEMBROLIZUMAB
     Route: 041
     Dates: start: 20200305, end: 20200305
  18. ALPRAZOLAM. [Concomitant]
     Active Substance: ALPRAZOLAM
     Dates: start: 201910
  19. SENNA [Concomitant]
     Active Substance: SENNA LEAF\SENNOSIDES\SENNOSIDES A AND B
     Dates: start: 20200709
  20. ASPIRIN. [Concomitant]
     Active Substance: ASPIRIN
     Dates: start: 201508
  21. BRILINTA [Concomitant]
     Active Substance: TICAGRELOR
     Dates: start: 201508
  22. PEMETREXED. [Suspect]
     Active Substance: PEMETREXED
     Indication: NON-SMALL CELL LUNG CANCER METASTATIC
     Route: 041
     Dates: start: 20191121, end: 20200528
  23. MIRALAX [Concomitant]
     Active Substance: POLYETHYLENE GLYCOL 3350
     Dates: start: 20200709
  24. LENVATINIB [Suspect]
     Active Substance: LENVATINIB
     Indication: NON-SMALL CELL LUNG CANCER METASTATIC
     Route: 048
     Dates: start: 20191121, end: 20200930
  25. METOPROLOL. [Concomitant]
     Active Substance: METOPROLOL
     Dates: start: 201401
  26. DULCOLAX NOS [Concomitant]
     Active Substance: BISACODYL OR DOCUSATE SODIUM
     Dates: start: 20201001

REACTIONS (1)
  - Gastric ulcer haemorrhage [Not Recovered/Not Resolved]

NARRATIVE: CASE EVENT DATE: 20201026
